FAERS Safety Report 12912942 (Version 1)
Quarter: 2016Q4

REPORT INFORMATION
  Report Type: Spontaneous
  Country: NL (occurrence: NL)
  Receive Date: 20161104
  Receipt Date: 20161104
  Transmission Date: 20170207
  Serious: Yes (Disabling)
  Sender: FDA-Public Use
  Company Number: NL-SA-2016SA197219

PATIENT
  Age: 58 Year
  Sex: Female

DRUGS (3)
  1. PIROXICAM. [Concomitant]
     Active Substance: PIROXICAM
     Dates: start: 20160313, end: 20160414
  2. PYRIDOXINE [Concomitant]
     Active Substance: PYRIDOXINE
     Route: 048
     Dates: start: 20160313, end: 20160414
  3. RIFINAH [Suspect]
     Active Substance: ISONIAZID\RIFAMPIN
     Indication: LATENT TUBERCULOSIS
     Route: 048
     Dates: start: 20160313, end: 20160414

REACTIONS (1)
  - Paraesthesia [Recovered/Resolved with Sequelae]

NARRATIVE: CASE EVENT DATE: 20160313
